FAERS Safety Report 4838681-0 (Version None)
Quarter: 2005Q4

REPORT INFORMATION
  Report Type: 
  Country: None (occurrence: None)
  Receive Date: 20051129
  Receipt Date: 20050825
  Transmission Date: 20060501
  Serious: No
  Sender: FDA-Public Use
  Company Number: US-GLAXOSMITHKLINE-A0571767A

PATIENT
  Age: 35 Year
  Sex: Male
  Weight: 66 kg

DRUGS (1)
  1. COMMIT [Suspect]
     Dates: start: 20050820, end: 20050820

REACTIONS (5)
  - ABDOMINAL PAIN [None]
  - CHEST PAIN [None]
  - GASTROOESOPHAGEAL REFLUX DISEASE [None]
  - THROAT IRRITATION [None]
  - ULCER [None]
